FAERS Safety Report 8839805 (Version 1)
Quarter: 2012Q4

REPORT INFORMATION
  Report Type: 
  Country: US (occurrence: US)
  Receive Date: 20121015
  Receipt Date: 20121015
  Transmission Date: 20130627
  Serious: No
  Sender: FDA-Public Use
  Company Number: US-BRISTOL-MYERS SQUIBB COMPANY-16302416

PATIENT
  Sex: Female

DRUGS (1)
  1. KENALOG-40 INJ [Suspect]
     Dosage: Two injections on (11-july-2011) and (1-Aug-2011)
     Route: 008
     Dates: start: 20110711

REACTIONS (5)
  - Joint swelling [Unknown]
  - Alopecia [Unknown]
  - Nervousness [Unknown]
  - Agitation [Unknown]
  - Insomnia [Unknown]
